FAERS Safety Report 16643125 (Version 12)
Quarter: 2020Q4

REPORT INFORMATION
  Report Type: Spontaneous
  Country: US (occurrence: US)
  Receive Date: 20190729
  Receipt Date: 20201105
  Transmission Date: 20210113
  Serious: No
  Sender: FDA-Public Use
  Company Number: US-PFIZER INC-2019320369

PATIENT
  Age: 69 Year
  Sex: Female
  Weight: 64 kg

DRUGS (10)
  1. PAXIL [PIROXICAM] [Concomitant]
     Active Substance: PIROXICAM
     Indication: RELAXATION THERAPY
     Dosage: UNK
  2. LIDOCAINE. [Concomitant]
     Active Substance: LIDOCAINE
     Dosage: UNK
  3. CALCIUM [Concomitant]
     Active Substance: CALCIUM
     Dosage: UNK
  4. LIPITOR [Concomitant]
     Active Substance: ATORVASTATIN CALCIUM
     Indication: ATRIOVENTRICULAR BLOCK
     Dosage: UNK
  5. KLONOPIN [Concomitant]
     Active Substance: CLONAZEPAM
     Indication: ANXIETY
     Dosage: UNK UNK, 2X/DAY (TAKES MORNING AND NIGHT  )
  6. VITAMIN B [Concomitant]
     Active Substance: VITAMIN B
     Dosage: UNK
  7. UBIQUINOL [Concomitant]
     Active Substance: UBIQUINOL
     Indication: ATRIOVENTRICULAR BLOCK
     Dosage: UNK
  8. PANTOPRAZOLE SODIUM. [Concomitant]
     Active Substance: PANTOPRAZOLE SODIUM
     Indication: GASTRIC DISORDER
     Dosage: 40 MG, UNK (EVERY MORNING AND NIGHT)
  9. ALIGN [Concomitant]
     Active Substance: BIFIDOBACTERIUM LONGUM SUBSP. INFANTIS
     Indication: GASTRIC DISORDER
     Dosage: UNK
  10. LYRICA [Suspect]
     Active Substance: PREGABALIN
     Indication: NEUROPATHY PERIPHERAL
     Dosage: 75 MG, 2X/DAY, TWICE A DAY(ONE IN MORNING AND ONE AT NIGHT)
     Dates: start: 2018

REACTIONS (13)
  - Off label use [Unknown]
  - Drug effective for unapproved indication [Unknown]
  - Feeling abnormal [Unknown]
  - Intentional product misuse [Unknown]
  - Pharyngitis streptococcal [Unknown]
  - Diarrhoea [Unknown]
  - Product dose omission issue [Unknown]
  - Weight decreased [Recovering/Resolving]
  - Anaemia [Unknown]
  - Product use in unapproved indication [Unknown]
  - Fatigue [Unknown]
  - Therapeutic product effect incomplete [Unknown]
  - Cognitive disorder [Unknown]

NARRATIVE: CASE EVENT DATE: 2018
